FAERS Safety Report 18034193 (Version 2)
Quarter: 2020Q3

REPORT INFORMATION
  Report Type: Spontaneous
  Country: US (occurrence: US)
  Receive Date: 20200716
  Receipt Date: 20200817
  Transmission Date: 20201103
  Serious: No
  Sender: FDA-Public Use
  Company Number: US-BAYER-2020-141344

PATIENT
  Age: 67 Year
  Sex: Female

DRUGS (1)
  1. CLIMARA [Suspect]
     Active Substance: ESTRADIOL
     Dosage: UNK
     Route: 062
     Dates: start: 20200601

REACTIONS (3)
  - Product adhesion issue [None]
  - Feeling hot [None]
  - Migraine [None]

NARRATIVE: CASE EVENT DATE: 2020
